FAERS Safety Report 6203731-6 (Version None)
Quarter: 2009Q2

REPORT INFORMATION
  Report Type: 
  Country: None (occurrence: None)
  Receive Date: 20090526
  Receipt Date: 20090526
  Transmission Date: 20091009
  Serious: Yes (Other)
  Sender: FDA-Public Use
  Company Number: None

PATIENT
  Age: 28 Year
  Sex: Female
  Weight: 63.5036 kg

DRUGS (1)
  1. EFFEXOR [Suspect]
     Indication: POSTPARTUM DEPRESSION
     Dosage: 75MG 1 DAILY PO
     Route: 048
     Dates: start: 20051228, end: 20090519

REACTIONS (5)
  - DIZZINESS [None]
  - DRUG WITHDRAWAL SYNDROME [None]
  - EMOTIONAL DISORDER [None]
  - HEADACHE [None]
  - VISION BLURRED [None]
